FAERS Safety Report 15249829 (Version 5)
Quarter: 2020Q2

REPORT INFORMATION
  Report Type: Report from Study
  Country: None (occurrence: FR)
  Receive Date: 20180807
  Receipt Date: 20200409
  Transmission Date: 20200713
  Serious: Yes (Hospitalization, Other)
  Sender: FDA-Public Use
  Company Number: FR-ABBVIE-18S-056-2444229-00

PATIENT
  Age: 25 Year
  Sex: Female
  Weight: 56 kg

DRUGS (7)
  1. COMBIVIR [Suspect]
     Active Substance: LAMIVUDINE\ZIDOVUDINE
     Indication: HIV INFECTION
     Route: 065
     Dates: start: 20050908
  2. KALETRA [Suspect]
     Active Substance: LOPINAVIR\RITONAVIR
     Indication: HIV INFECTION
     Route: 065
     Dates: start: 20050908
  3. EMTRIVA [Suspect]
     Active Substance: EMTRICITABINE
     Indication: HIV INFECTION
     Route: 065
     Dates: start: 20050523
  4. VIRAMUNE [Suspect]
     Active Substance: NEVIRAPINE
     Indication: HIV INFECTION
     Route: 048
     Dates: start: 20050620, end: 2005
  5. VIRAMUNE [Suspect]
     Active Substance: NEVIRAPINE
     Route: 048
     Dates: start: 20050704
  6. SUSTIVA [Suspect]
     Active Substance: EFAVIRENZ
     Indication: HIV INFECTION
     Route: 065
     Dates: start: 20050523, end: 20050908
  7. VIDEX [Suspect]
     Active Substance: DIDANOSINE
     Indication: HIV INFECTION
     Route: 065
     Dates: start: 20050523, end: 20050908

REACTIONS (5)
  - Abortion induced [Unknown]
  - Maternal exposure during pregnancy [Unknown]
  - Folate deficiency [Unknown]
  - Insomnia [Unknown]
  - Vertigo [Unknown]

NARRATIVE: CASE EVENT DATE: 20060216
